FAERS Safety Report 13656997 (Version 4)
Quarter: 2017Q4

REPORT INFORMATION
  Report Type: Report from Study
  Country: US (occurrence: US)
  Receive Date: 20170615
  Receipt Date: 20171121
  Transmission Date: 20180320
  Serious: Yes (Other)
  Sender: FDA-Public Use
  Company Number: US-GILEAD-2017-0267499

PATIENT
  Age: 30 Year
  Sex: Female
  Weight: 61.22 kg

DRUGS (8)
  1. REMODULIN [Suspect]
     Active Substance: TREPROSTINIL
     Indication: PRODUCT USED FOR UNKNOWN INDICATION
     Dosage: 1 MG/ML
     Route: 058
     Dates: start: 20170410
  2. DIGOXIN. [Concomitant]
     Active Substance: DIGOXIN
  3. AMBRISENTAN [Suspect]
     Active Substance: AMBRISENTAN
     Indication: PULMONARY ARTERIAL HYPERTENSION
     Dosage: 10 MG, QD
     Route: 048
     Dates: start: 20080819
  4. LASIX [Concomitant]
     Active Substance: FUROSEMIDE
  5. TYVASO [Concomitant]
     Active Substance: TREPROSTINIL
  6. ADCIRCA [Concomitant]
     Active Substance: TADALAFIL
  7. WARFARIN [Concomitant]
     Active Substance: WARFARIN
  8. POTASSIUM CHLORIDE. [Concomitant]
     Active Substance: POTASSIUM CHLORIDE

REACTIONS (6)
  - Headache [Unknown]
  - Dyspnoea exertional [Unknown]
  - Unevaluable event [Unknown]
  - Syncope [Unknown]
  - Injection site pain [Unknown]
  - Dyspnoea [Unknown]

NARRATIVE: CASE EVENT DATE: 20170410
